FAERS Safety Report 4818887-7 (Version None)
Quarter: 2005Q4

REPORT INFORMATION
  Report Type: 
  Country: None (occurrence: None)
  Receive Date: 20051031
  Receipt Date: 20051025
  Transmission Date: 20060501
  Serious: Yes (Death)
  Sender: FDA-Public Use
  Company Number: FRWYE089426OCT05

PATIENT
  Age: 76 Year
  Sex: Female

DRUGS (13)
  1. EFFEXOR [Suspect]
     Dosage: 37.5 MG 1X PER 1DAY
     Route: 048
     Dates: start: 20040831, end: 20040913
  2. DOXORUBICIN HCL [Suspect]
     Indication: MULTIPLE MYELOMA
     Dosage: 30 MG 1X PER 1 DAY
     Route: 042
     Dates: start: 20040901, end: 20040901
  3. DEXAMETHASONE [Suspect]
     Indication: MULTIPLE MYELOMA
     Dosage: 40 MG 1X PER 1 DAY
     Route: 048
     Dates: start: 20040901, end: 20040909
  4. MELPHALAN (MELPHALAN) [Suspect]
     Indication: MULTIPLE MYELOMA
     Dates: start: 20010101
  5. RABEPRAZOLE SODIUM [Suspect]
     Dosage: 1 TABLET 1X PER 1 DAY
     Route: 048
     Dates: start: 20040831, end: 20040913
  6. PREDNISONE [Suspect]
     Indication: MULTIPLE MYELOMA
     Dates: start: 20010101
  7. SOLUPRED (PREDNISOLONE SODIUM SULFOBENZOATE) [Suspect]
     Dosage: 20 MG 1X PER 1 DAY
     Route: 048
     Dates: start: 20040831, end: 20040913
  8. LORAZEPAM [Suspect]
     Dosage: 500 UG 1X PER 1 DAY
     Route: 048
     Dates: start: 20040830, end: 20040913
  9. THALIDOMIDE (THALIDOMIDE) [Suspect]
     Indication: MULTIPLE MYELOMA
     Dosage: SEE IMAGE
     Route: 048
     Dates: start: 20040830, end: 20040902
  10. THALIDOMIDE (THALIDOMIDE) [Suspect]
     Indication: MULTIPLE MYELOMA
     Dosage: SEE IMAGE
     Route: 048
     Dates: start: 20040903, end: 20040903
  11. . [Concomitant]
  12. VINCRISTINE [Suspect]
     Indication: MULTIPLE MYELOMA
     Dates: start: 20040901
  13. ZOMETA [Suspect]
     Dosage: 4 MG 1X PER 1 DAY
     Route: 042
     Dates: start: 20040831, end: 20040831

REACTIONS (7)
  - COMA [None]
  - LEUKOPENIA [None]
  - LUNG INFECTION PSEUDOMONAL [None]
  - NEUTROPENIA [None]
  - PSEUDOMONAL SEPSIS [None]
  - RED BLOOD CELL COUNT DECREASED [None]
  - THROMBOCYTOPENIA [None]
